FAERS Safety Report 9474918 (Version 2)
Quarter: 2013Q4

REPORT INFORMATION
  Report Type: Spontaneous
  Country: US (occurrence: US)
  Receive Date: 20130823
  Receipt Date: 20131227
  Transmission Date: 20140711
  Serious: Yes (Other)
  Sender: FDA-Public Use
  Company Number: US-B.I. PHARMACEUTICALS,INC./RIDGEFIELD-2013-BI-24860BP

PATIENT
  Age: 77 Year
  Sex: Female
  Weight: 64 kg

DRUGS (15)
  1. SPIRIVA [Suspect]
     Indication: CHRONIC OBSTRUCTIVE PULMONARY DISEASE
     Dosage: 18 MCG
     Route: 055
     Dates: start: 2010
  2. NEXIUM [Concomitant]
     Indication: GASTROOESOPHAGEAL REFLUX DISEASE
     Dosage: 40 MG
     Route: 048
  3. PLAVIX [Concomitant]
     Dosage: 75 MG
     Route: 048
  4. DIGOXIN [Concomitant]
     Indication: ATRIAL FIBRILLATION
     Dosage: 0.125 MG
     Route: 048
  5. POTASSIUM CHLORIDE [Concomitant]
     Dosage: 10 MEQ
     Route: 048
  6. DILTIAZEM [Concomitant]
     Indication: ATRIAL FIBRILLATION
     Dosage: 180 MG
     Route: 048
  7. FOSAMAX [Concomitant]
     Indication: OSTEOPOROSIS
     Route: 048
  8. XANAX [Concomitant]
     Indication: SLEEP DISORDER
     Dosage: 0.5 MG
     Route: 048
  9. MUCINEX [Concomitant]
     Dosage: 2400 MG
     Route: 048
  10. CALTRATE + D [Concomitant]
     Dosage: 1200 MG
     Route: 048
  11. MACULAR D [Concomitant]
     Dosage: FORMULATION: CAPLET
  12. FISH OIL [Concomitant]
     Route: 048
  13. ACIDOPHILUS [Concomitant]
     Route: 048
  14. ZYRTEC [Concomitant]
     Indication: SEASONAL ALLERGY
     Dosage: 10 MG
     Route: 048
  15. ALBUTEROL NEBULIZER [Concomitant]
     Indication: CHRONIC OBSTRUCTIVE PULMONARY DISEASE
     Route: 055

REACTIONS (1)
  - Macular degeneration [Not Recovered/Not Resolved]
